FAERS Safety Report 6709875-4 (Version None)
Quarter: 2010Q2

REPORT INFORMATION
  Report Type: 
  Country: None (occurrence: None)
  Receive Date: 20100503
  Receipt Date: 20100503
  Transmission Date: 20101027
  Serious: Yes (Other)
  Sender: FDA-Public Use
  Company Number: None

PATIENT
  Sex: Male
  Weight: 14.5151 kg

DRUGS (2)
  1. CHILDREN'S TYLENOL SUSPENSION [Suspect]
     Indication: PAIN IN EXTREMITY
     Dosage: 5 ML 2X PO
     Route: 048
     Dates: start: 20100429, end: 20100429
  2. CHILDREN'S TYLENOL SUSPENSION [Suspect]
     Indication: VACCINATION COMPLICATION
     Dosage: 5 ML 2X PO
     Route: 048
     Dates: start: 20100429, end: 20100429

REACTIONS (2)
  - PRODUCT QUALITY ISSUE [None]
  - VOMITING [None]
